FAERS Safety Report 25199854 (Version 1)
Quarter: 2025Q2

REPORT INFORMATION
  Report Type: Spontaneous
  Country: JP (occurrence: JP)
  Receive Date: 20250415
  Receipt Date: 20250415
  Transmission Date: 20250717
  Serious: Yes (Other)
  Sender: ALEXION PHARMACEUTICALS
  Company Number: JP-ASTRAZENECA-250032649_010520_P_1

PATIENT

DRUGS (4)
  1. FULVESTRANT [Suspect]
     Active Substance: FULVESTRANT
     Indication: Breast cancer female
     Dosage: 500 MILLIGRAM, Q4W
  2. FULVESTRANT [Suspect]
     Active Substance: FULVESTRANT
  3. VERZENIO [Concomitant]
     Active Substance: ABEMACICLIB
     Indication: Breast cancer female
     Route: 065
  4. VERZENIO [Concomitant]
     Active Substance: ABEMACICLIB
     Route: 065

REACTIONS (3)
  - Metastases to bone [Unknown]
  - Motor dysfunction [Not Recovered/Not Resolved]
  - Gait disturbance [Unknown]
